FAERS Safety Report 8551587-9 (Version None)
Quarter: 2012Q3

REPORT INFORMATION
  Report Type: 
  Country: None (occurrence: None)
  Receive Date: 20120730
  Receipt Date: 20120724
  Transmission Date: 20120928
  Serious: Yes (Other)
  Sender: FDA-Public Use
  Company Number: US-JNJFOC-20100105523

PATIENT
  Sex: Male
  Weight: 75.75 kg

DRUGS (1)
  1. LEVAQUIN [Suspect]
     Indication: BRONCHITIS
     Route: 048
     Dates: start: 20051101, end: 20051101

REACTIONS (5)
  - TENDONITIS [None]
  - DISORIENTATION [None]
  - TENDON RUPTURE [None]
  - MUSCLE SPASMS [None]
  - CONFUSIONAL STATE [None]
